FAERS Safety Report 18652229 (Version 2)
Quarter: 2021Q1

REPORT INFORMATION
  Report Type: Spontaneous
  Country: US (occurrence: US)
  Receive Date: 20201222
  Receipt Date: 20210121
  Transmission Date: 20210419
  Serious: Yes (Hospitalization)
  Sender: FDA-Public Use
  Company Number: US-ELI_LILLY_AND_COMPANY-US202012010562

PATIENT
  Age: 83 Year
  Sex: Male
  Weight: 73.92 kg

DRUGS (3)
  1. BAMLANIVIMAB 700MG [Suspect]
     Active Substance: BAMLANIVIMAB
     Indication: COVID-19
     Dosage: 700 MG, SINGLE
     Route: 041
     Dates: start: 20201218, end: 20201218
  2. SODIUM CHLORIDE. [Concomitant]
     Active Substance: SODIUM CHLORIDE
     Indication: PRODUCT USED FOR UNKNOWN INDICATION
     Dosage: UNK, UNKNOWN
     Route: 065
     Dates: start: 20201217, end: 20201218
  3. DIPHENHYDRAMINE. [Concomitant]
     Active Substance: DIPHENHYDRAMINE
     Indication: PRODUCT USED FOR UNKNOWN INDICATION
     Dosage: 25 MG, UNKNOWN
     Route: 065
     Dates: start: 20201217, end: 20201218

REACTIONS (6)
  - Tachypnoea [Unknown]
  - Pyrexia [Unknown]
  - Tachycardia [Unknown]
  - Wheezing [Unknown]
  - Hypersensitivity [Unknown]
  - Hypoxia [Unknown]

NARRATIVE: CASE EVENT DATE: 20201218
